FAERS Safety Report 4640352-0 (Version None)
Quarter: 2005Q2

REPORT INFORMATION
  Report Type: 
  Country: None (occurrence: None)
  Receive Date: 20050420
  Receipt Date: 20040513
  Transmission Date: 20051028
  Serious: No
  Sender: FDA-Public Use
  Company Number: US-GLAXOSMITHKLINE-A0510727A

PATIENT
  Age: 43 Year
  Sex: Female

DRUGS (6)
  1. ESKALITH [Suspect]
     Indication: DEPRESSION
     Dosage: 300MG VARIABLE DOSE
     Route: 048
     Dates: start: 19690101
  2. ACIPHEX [Concomitant]
  3. ASPIRIN [Concomitant]
  4. VITAMIN B-12 [Concomitant]
  5. THIAMINE HCL [Concomitant]
  6. VITAMIN C [Concomitant]

REACTIONS (2)
  - ALOPECIA [None]
  - WEIGHT INCREASED [None]
